FAERS Safety Report 4376096-2 (Version None)
Quarter: 2004Q2

REPORT INFORMATION
  Report Type: 
  Country: None (occurrence: None)
  Receive Date: 20040611
  Receipt Date: 20040607
  Transmission Date: 20050107
  Serious: Yes (Hospitalization)
  Sender: FDA-Public Use
  Company Number: US-GLAXOSMITHKLINE-A0514116A

PATIENT
  Age: 61 Year
  Sex: Male

DRUGS (2)
  1. PAXIL [Suspect]
     Indication: DEPRESSION
     Route: 048
  2. EFFEXOR [Suspect]
     Indication: DEPRESSION

REACTIONS (14)
  - ANOREXIA [None]
  - CONFUSIONAL STATE [None]
  - DEATH [None]
  - DEPRESSION [None]
  - ERECTILE DYSFUNCTION [None]
  - FEELING ABNORMAL [None]
  - NAUSEA [None]
  - OVERDOSE [None]
  - PNEUMONIA [None]
  - SEXUAL DYSFUNCTION [None]
  - SOMNOLENCE [None]
  - SUICIDAL IDEATION [None]
  - TREMOR [None]
  - WEIGHT DECREASED [None]
